FAERS Safety Report 6870628-8 (Version None)
Quarter: 2010Q3

REPORT INFORMATION
  Report Type: 
  Country: None (occurrence: None)
  Receive Date: 20100721
  Receipt Date: 20100708
  Transmission Date: 20110219
  Serious: Yes (Hospitalization)
  Sender: FDA-Public Use
  Company Number: 2010AP001170

PATIENT
  Age: 59 Year
  Sex: Male

DRUGS (15)
  1. PREDNISOLONE [Suspect]
     Indication: KIDNEY TRANSPLANT REJECTION
     Dosage: 10 MG;QD ; 15 MG;PO;QD ; 15 MG;QD ; 25 MG;QD ; PO;QD
     Route: 048
     Dates: start: 20090827, end: 20090915
  2. PREDNISOLONE [Suspect]
     Indication: KIDNEY TRANSPLANT REJECTION
     Dosage: 10 MG;QD ; 15 MG;PO;QD ; 15 MG;QD ; 25 MG;QD ; PO;QD
     Route: 048
     Dates: start: 20090916, end: 20090916
  3. PREDNISOLONE [Suspect]
     Indication: KIDNEY TRANSPLANT REJECTION
     Dosage: 10 MG;QD ; 15 MG;PO;QD ; 15 MG;QD ; 25 MG;QD ; PO;QD
     Route: 048
     Dates: start: 20090919, end: 20091126
  4. PREDNISOLONE [Suspect]
     Indication: KIDNEY TRANSPLANT REJECTION
     Dosage: 10 MG;QD ; 15 MG;PO;QD ; 15 MG;QD ; 25 MG;QD ; PO;QD
     Route: 048
     Dates: start: 20090118
  5. MYCOPHENOLATE MOFETIL [Suspect]
     Indication: KIDNEY TRANSPLANT REJECTION
     Dosage: 750 MG;PO;BID ; 1000 MG;PO;BID ; 1000 MG;QD ; 1000 MG;QD
     Route: 048
     Dates: start: 20090115, end: 20090115
  6. MYCOPHENOLATE MOFETIL [Suspect]
     Indication: KIDNEY TRANSPLANT REJECTION
     Dosage: 750 MG;PO;BID ; 1000 MG;PO;BID ; 1000 MG;QD ; 1000 MG;QD
     Route: 048
     Dates: start: 20090116, end: 20090813
  7. MYCOPHENOLATE MOFETIL [Suspect]
     Indication: KIDNEY TRANSPLANT REJECTION
     Dosage: 750 MG;PO;BID ; 1000 MG;PO;BID ; 1000 MG;QD ; 1000 MG;QD
     Route: 048
     Dates: start: 20090115
  8. MYCOPHENOLATE MOFETIL [Suspect]
     Indication: KIDNEY TRANSPLANT REJECTION
     Dosage: 750 MG;PO;BID ; 1000 MG;PO;BID ; 1000 MG;QD ; 1000 MG;QD
     Route: 048
     Dates: start: 20090814
  9. CYCLOSPORINE [Suspect]
     Indication: KIDNEY TRANSPLANT REJECTION
     Dosage: 75 MG;PO;BID ; 150 MG;PO;BID ; 75 MG;BID;PO
     Route: 048
     Dates: start: 20090520, end: 20091012
  10. CYCLOSPORINE [Suspect]
     Indication: KIDNEY TRANSPLANT REJECTION
     Dosage: 75 MG;PO;BID ; 150 MG;PO;BID ; 75 MG;BID;PO
     Route: 048
     Dates: start: 20090116
  11. CYCLOSPORINE [Suspect]
     Indication: KIDNEY TRANSPLANT REJECTION
     Dosage: 75 MG;PO;BID ; 150 MG;PO;BID ; 75 MG;BID;PO
     Route: 048
     Dates: start: 20090116
  12. INVESTIGATIONAL DRUG (INVESTIGATIONAL DRUG) [Suspect]
  13. INSULIN ASPART (INSULIN ASPART) [Concomitant]
  14. INSULIN GLARGINE (INSULIN GLARGINE) [Concomitant]
  15. ESOMEPRAZOLE MAGNESIUM [Concomitant]

REACTIONS (5)
  - CHILLS [None]
  - CULTURE URINE POSITIVE [None]
  - INFECTION [None]
  - PYELONEPHRITIS [None]
  - PYREXIA [None]
